FAERS Safety Report 10266996 (Version 1)
Quarter: 2014Q2

REPORT INFORMATION
  Report Type: Spontaneous
  Country: US (occurrence: US)
  Receive Date: 20140630
  Receipt Date: 20140630
  Transmission Date: 20141212
  Serious: No
  Sender: FDA-Public Use
  Company Number: US-AMGEN-USASP2014048323

PATIENT
  Age: 43 Year
  Sex: Male
  Weight: 133.7 kg

DRUGS (10)
  1. ENBREL [Suspect]
     Indication: RHEUMATOID ARTHRITIS
     Dosage: 50 MG, QWK
     Route: 058
     Dates: start: 2009
  2. CALCIUM [Concomitant]
     Dosage: UNK
  3. FOLIC ACID [Concomitant]
  4. IRON [Concomitant]
     Dosage: UNK
  5. METHOTREXATE [Concomitant]
     Dosage: UNK
  6. MULTIVITAMIN                       /00097801/ [Concomitant]
     Dosage: UNK
  7. PLAQUENIL                          /00072602/ [Concomitant]
     Dosage: UNK
  8. VITAMIN B-1 [Concomitant]
     Dosage: UNK
  9. VITAMIN B-12 [Concomitant]
     Dosage: UNK
  10. VITAMIN K                          /00032401/ [Concomitant]
     Dosage: UNK

REACTIONS (2)
  - Sinusitis [Not Recovered/Not Resolved]
  - Injection site pain [Not Recovered/Not Resolved]
